FAERS Safety Report 10041104 (Version 2)
Quarter: 2014Q1

REPORT INFORMATION
  Report Type: Spontaneous
  Country: US (occurrence: US)
  Receive Date: 20140327
  Receipt Date: 20140327
  Transmission Date: 20141002
  Serious: No
  Sender: FDA-Public Use
  Company Number: US-B.I. PHARMACEUTICALS,INC./RIDGEFIELD-2013-BI-36145BP

PATIENT
  Age: 74 Year
  Sex: Male

DRUGS (5)
  1. PRADAXA [Suspect]
     Indication: PRODUCT USED FOR UNKNOWN INDICATION
     Dosage: 300 MG
     Route: 048
     Dates: start: 201309, end: 20131119
  2. PRADAXA [Suspect]
     Dosage: 150 MG
     Route: 048
     Dates: start: 20131120
  3. TOPROL [Concomitant]
     Route: 048
  4. CARDIZEM [Concomitant]
     Route: 048
  5. CRESTOR [Concomitant]
     Route: 048

REACTIONS (3)
  - Contusion [Unknown]
  - Tooth disorder [Unknown]
  - Procedural pain [Unknown]
